FAERS Safety Report 12304598 (Version 1)
Quarter: 2016Q2

REPORT INFORMATION
  Report Type: Spontaneous
  Country: DE (occurrence: DE)
  Receive Date: 20160426
  Receipt Date: 20160426
  Transmission Date: 20160815
  Serious: Yes (Other)
  Sender: FDA-Public Use
  Company Number: DE-ROCHE-1747157

PATIENT
  Sex: Female

DRUGS (1)
  1. AVASTIN [Suspect]
     Active Substance: BEVACIZUMAB
     Indication: LUNG NEOPLASM MALIGNANT
     Dosage: MAINTENANCE THERAPY
     Route: 065
     Dates: start: 201309

REACTIONS (2)
  - Posterior reversible encephalopathy syndrome [Unknown]
  - Visual acuity reduced [Unknown]
